FAERS Safety Report 17553223 (Version 1)
Quarter: 2020Q1

REPORT INFORMATION
  Report Type: Report from Study
  Country: US (occurrence: US)
  Receive Date: 20200317
  Receipt Date: 20200317
  Transmission Date: 20200409
  Serious: Yes (Death)
  Sender: FDA-Public Use
  Company Number: US-AGIOS-2003US01739

PATIENT

DRUGS (1)
  1. TIBSOVO [Suspect]
     Active Substance: IVOSIDENIB
     Indication: ACUTE MYELOID LEUKAEMIA RECURRENT
     Dosage: 250 MILLIGRAM, QD
     Dates: start: 2019

REACTIONS (4)
  - Disease progression [Unknown]
  - Therapy non-responder [Unknown]
  - Off label use [Recovered/Resolved]
  - Infection [Fatal]

NARRATIVE: CASE EVENT DATE: 2019
